FAERS Safety Report 8761712 (Version 2)
Quarter: 2012Q4

REPORT INFORMATION
  Report Type: Spontaneous
  Country: DK (occurrence: None)
  Receive Date: 20120822
  Receipt Date: 20121009
  Transmission Date: 20130627
  Serious: Yes (Hospitalization, Other)
  Sender: FDA-Public Use
  Company Number: 2012MA010072

PATIENT
  Age: 26 Year
  Sex: Female

DRUGS (4)
  1. OXAZEPAM [Suspect]
     Indication: ANXIETY
     Route: 048
     Dates: start: 20000518
  2. CIPRAMIL [Suspect]
     Indication: ANXIETY
     Route: 048
     Dates: start: 20000518
  3. ZYPREXA (OLANZAPINE) [Concomitant]
     Route: 048
     Dates: start: 20000518
  4. EFEXOR (VENLAFAXINE HYDROCHLORIDE) [Concomitant]
     Route: 048
     Dates: start: 20000518

REACTIONS (19)
  - Anxiety [None]
  - Obsessive thoughts [None]
  - Obsessive-compulsive disorder [None]
  - Eating disorder [None]
  - Delusion [None]
  - Psychotic disorder [None]
  - Weight increased [None]
  - Dyslalia [None]
  - Tongue paralysis [None]
  - Generalised anxiety disorder [None]
  - Depression [None]
  - Speech disorder [None]
  - Fatigue [None]
  - Antisocial behaviour [None]
  - Headache [None]
  - Acne [None]
  - Disturbance in attention [None]
  - Memory impairment [None]
  - Drug ineffective [None]
